FAERS Safety Report 8858807 (Version 2)
Quarter: 2013Q2

REPORT INFORMATION
  Report Type: Spontaneous
  Country: US (occurrence: US)
  Receive Date: 20121024
  Receipt Date: 20130401
  Transmission Date: 20140414
  Serious: Yes (Hospitalization)
  Sender: FDA-Public Use
  Company Number: US-BAYER-2012-108912

PATIENT
  Age: 51 Year
  Sex: Female
  Weight: 56.24 kg

DRUGS (9)
  1. YAZ [Suspect]
  2. YASMIN [Suspect]
  3. OCELLA [Suspect]
  4. VITAMIN B12 [Concomitant]
  5. XANAX [Concomitant]
     Dosage: 0.5 MG, BID,  AS NEEDED
  6. PERCOCET [Concomitant]
     Dosage: 7.5/325, 1 TO 2 TABLETS EVERY 4 HOURS AS NEEDED.
  7. MORPHINE [Concomitant]
     Indication: PAIN
  8. Z-PAK [Concomitant]
  9. BROMFED-DM [Concomitant]
     Indication: COUGH

REACTIONS (4)
  - Pulmonary embolism [Recovered/Resolved]
  - Pain [Recovered/Resolved]
  - Injury [Recovered/Resolved]
  - Pain [None]
